FAERS Safety Report 22230851 (Version 1)
Quarter: 2023Q2

REPORT INFORMATION
  Report Type: Spontaneous
  Country: GB (occurrence: GB)
  Receive Date: 20230420
  Receipt Date: 20230420
  Transmission Date: 20230721
  Serious: Yes (Other)
  Sender: FDA-Public Use
  Company Number: GB-MHRA-MED-202304111414441310-FNWLH

PATIENT
  Age: 27 Year
  Sex: Female

DRUGS (1)
  1. ARIPIPRAZOLE [Suspect]
     Active Substance: ARIPIPRAZOLE
     Indication: Borderline personality disorder
     Dosage: UNK
     Route: 065

REACTIONS (1)
  - Gambling disorder [Recovered/Resolved]
